FAERS Safety Report 10369186 (Version 1)
Quarter: 2014Q1

REPORT INFORMATION
  Report Type: Spontaneous
  Country: US (occurrence: None)
  Receive Date: 20140306
  Receipt Date: 20140306
  Transmission Date: 20141002
  Serious: Yes (Hospitalization)
  Sender: FDA-Public Use
  Company Number: 163-21880-13033206

PATIENT
  Age: 70 Year
  Sex: Male
  Weight: 66.68 kg

DRUGS (12)
  1. REVLIMID [Suspect]
     Indication: PLASMA CELL MYELOMA
     Route: 048
     Dates: start: 200601
  2. ZOLPIDEM (ZOLPIDEM) (UNKNOWN) (ZOLPIDEM) [Concomitant]
  3. CALCIUM + VITAMIN D (LEKOVIT CA) (UNKNOWN) [Concomitant]
  4. DEXAMETHASONE (DEXAMETHASONE) (4 MILLIGRAM, UNKNOWN) [Concomitant]
  5. FAMCICLOVIR (FAMCICLOVIR) (UNKNOWN) [Concomitant]
  6. PREGABALIN (PREGABALIN) (UNKNOWN) [Concomitant]
  7. MAGNESIUM CARBONATE (MANESIUM CARBONATE) (UNKNOWN) [Concomitant]
  8. OXYCODONE (OXYCODONE) (TABLETS) [Concomitant]
  9. VITAMIN B6 (PYRIDOXINE HYDROCHLORIDE) (UNKNOWN) [Concomitant]
  10. ZOLEDRONIC ACID (ZOLEDRONIC ACID) (UNKNOWN) [Concomitant]
  11. AVELOX (MOXIFLOXACIN HYDROCHLORIDE) (TABLETS) [Concomitant]
  12. VITAMIN D3 (COLECALCIFEROL) (TABLETS) [Concomitant]

REACTIONS (2)
  - Pneumonia [None]
  - Neutrophil count decreased [None]
